FAERS Safety Report 14313835 (Version 1)
Quarter: 2017Q4

REPORT INFORMATION
  Report Type: Spontaneous
  Country: JP (occurrence: JP)
  Receive Date: 20171221
  Receipt Date: 20171221
  Transmission Date: 20180321
  Serious: Yes (Disabling)
  Sender: FDA-Public Use
  Company Number: JP-PFIZER INC-2017516663

PATIENT
  Age: 4 Year
  Sex: Female
  Weight: 16 kg

DRUGS (5)
  1. ASVERIN (TIPEPIDINE HIBENZATE) [Suspect]
     Active Substance: TIPEPIDINE HIBENZATE
     Dosage: 0.4 G, 3X/DAY
     Route: 048
     Dates: start: 20171128
  2. MEPTIN [Suspect]
     Active Substance: PROCATEROL HYDROCHLORIDE
     Dosage: 0.3 G, 3X/DAY
     Route: 048
     Dates: start: 20171128
  3. MUCOSAL (AMBROXOL HYDROCHLORIDE) [Suspect]
     Active Substance: AMBROXOL HYDROCHLORIDE
     Dosage: 1.0 G, 3X/DAY
     Route: 048
     Dates: start: 20171128
  4. ZITHROMAC 10% [Suspect]
     Active Substance: AZITHROMYCIN ANHYDROUS
     Indication: PYREXIA
     Dosage: 1.6 G, 1X/DAY AFTER DINNER
     Route: 048
     Dates: start: 20171128, end: 20171129
  5. ZYRTEC [Suspect]
     Active Substance: CETIRIZINE HYDROCHLORIDE
     Dosage: 0.4 G, 2X/DAY
     Route: 048
     Dates: start: 20171128

REACTIONS (2)
  - Abnormal behaviour [Recovered/Resolved]
  - Abnormal behaviour [Recovered/Resolved]

NARRATIVE: CASE EVENT DATE: 20171128
